FAERS Safety Report 10512787 (Version 3)
Quarter: 2014Q4

REPORT INFORMATION
  Report Type: Report from Study
  Country: JP (occurrence: JP)
  Receive Date: 20141013
  Receipt Date: 20141020
  Transmission Date: 20150528
  Serious: Yes (Hospitalization)
  Sender: FDA-Public Use
  Company Number: JP-ROCHE-1421012

PATIENT
  Age: 79 Year
  Sex: Male

DRUGS (18)
  1. URSO [Concomitant]
     Active Substance: URSODIOL
     Route: 048
  2. DEPAS [Concomitant]
     Active Substance: ETIZOLAM
     Route: 048
  3. METHOXY POLYETHYLENE GLYCOL-EPOETIN BETA [Suspect]
     Active Substance: PEGZEREPOETIN ALFA
     Indication: NEPHROGENIC ANAEMIA
     Route: 058
     Dates: start: 20131216
  4. ZYLORIC [Concomitant]
     Active Substance: ALLOPURINOL
     Route: 048
  5. WYPAX [Concomitant]
     Active Substance: LORAZEPAM
     Route: 048
  6. MAGLAX [Concomitant]
     Active Substance: MAGNESIUM OXIDE
     Route: 048
  7. NEXIUM [Concomitant]
     Active Substance: ESOMEPRAZOLE MAGNESIUM
     Route: 048
  8. KAYEXALATE [Concomitant]
     Active Substance: SODIUM POLYSTYRENE SULFONATE
     Route: 048
  9. METHOXY POLYETHYLENE GLYCOL-EPOETIN BETA [Suspect]
     Active Substance: PEGZEREPOETIN ALFA
     Route: 058
     Dates: start: 20140616
  10. MAGLAX [Concomitant]
     Active Substance: MAGNESIUM OXIDE
     Route: 048
     Dates: end: 20140704
  11. SELBEX [Concomitant]
     Active Substance: TEPRENONE
     Route: 048
  12. FERROUS SULFATE [Concomitant]
     Active Substance: FERROUS SULFATE\FERROUS SULFATE, DRIED
     Route: 048
     Dates: start: 20140123, end: 20140201
  13. MAGLAX [Concomitant]
     Active Substance: MAGNESIUM OXIDE
     Route: 048
     Dates: start: 20140705, end: 20140824
  14. HALCION [Concomitant]
     Active Substance: TRIAZOLAM
     Route: 048
     Dates: start: 20140317
  15. METHOXY POLYETHYLENE GLYCOL-EPOETIN BETA [Suspect]
     Active Substance: PEGZEREPOETIN ALFA
     Indication: NEPHROGENIC ANAEMIA
     Route: 058
     Dates: start: 20131111, end: 20131111
  16. NORVASC [Concomitant]
     Active Substance: AMLODIPINE BESYLATE
     Route: 048
  17. MAGLAX [Concomitant]
     Active Substance: MAGNESIUM OXIDE
     Route: 048
     Dates: start: 20140825
  18. JUSO [Concomitant]
     Route: 048

REACTIONS (3)
  - Hepatocellular carcinoma [Recovered/Resolved]
  - Gastric antral vascular ectasia [Recovering/Resolving]
  - Hypertension [Unknown]

NARRATIVE: CASE EVENT DATE: 20140117
